FAERS Safety Report 16902874 (Version 3)
Quarter: 2019Q4

REPORT INFORMATION
  Report Type: Spontaneous
  Country: AU (occurrence: AU)
  Receive Date: 20191010
  Receipt Date: 20191206
  Transmission Date: 20200122
  Serious: Yes (Other)
  Sender: FDA-Public Use
  Company Number: AU-TASMAN PHARMA, INC.-2019TSM00106

PATIENT
  Sex: Female

DRUGS (24)
  1. CLOZAPINE. [Suspect]
     Active Substance: CLOZAPINE
     Dosage: 200 MG
     Dates: start: 20120606
  2. CLOZAPINE. [Suspect]
     Active Substance: CLOZAPINE
     Dosage: 175 MG
     Dates: start: 20140305
  3. CLOZAPINE. [Suspect]
     Active Substance: CLOZAPINE
     Dosage: 350 MG
     Dates: start: 20160405
  4. CLOZAPINE. [Suspect]
     Active Substance: CLOZAPINE
     Dosage: 175 MG
     Dates: start: 20131204
  5. CLOZAPINE. [Suspect]
     Active Substance: CLOZAPINE
     Dosage: 175 MG
     Dates: start: 20130911
  6. CLOZAPINE. [Suspect]
     Active Substance: CLOZAPINE
     Dosage: 275 MG
     Dates: start: 20150716
  7. CLOZAPINE. [Suspect]
     Active Substance: CLOZAPINE
     Dosage: 350 MG
     Dates: start: 201507, end: 201509
  8. CLOZAPINE. [Suspect]
     Active Substance: CLOZAPINE
     Dosage: 175 MG
     Dates: start: 20131231
  9. CLOZAPINE. [Suspect]
     Active Substance: CLOZAPINE
     Dosage: 175 MG
     Dates: start: 20150707
  10. CLOZAPINE. [Suspect]
     Active Substance: CLOZAPINE
     Dosage: 175 MG
     Dates: start: 20130619
  11. CLOZAPINE. [Suspect]
     Active Substance: CLOZAPINE
     Dosage: 175 MG
     Dates: start: 20140717
  12. CLOZAPINE. [Suspect]
     Active Substance: CLOZAPINE
     Dosage: 250 MG
     Dates: start: 20120125
  13. CLOZAPINE. [Suspect]
     Active Substance: CLOZAPINE
     Dosage: 200 MG
     Dates: start: 20120328
  14. CLOZAPINE. [Suspect]
     Active Substance: CLOZAPINE
     Dosage: 200 MG
     Dates: start: 20130417
  15. CLOZAPINE. [Suspect]
     Active Substance: CLOZAPINE
     Dosage: 200 MG
     Dates: start: 20120516
  16. CLOZAPINE. [Suspect]
     Active Substance: CLOZAPINE
     Dosage: 175 MG
     Dates: start: 20140212
  17. CLOZAPINE. [Suspect]
     Active Substance: CLOZAPINE
     Dosage: 175 MG
     Dates: start: 20131009
  18. CLOZAPINE. [Suspect]
     Active Substance: CLOZAPINE
     Dosage: 200 MG
     Dates: start: 20120222
  19. CLOZAPINE. [Suspect]
     Active Substance: CLOZAPINE
     Dosage: 100 MG
     Dates: start: 20150702
  20. CLOZAPINE. [Suspect]
     Active Substance: CLOZAPINE
     Dosage: 200 MG
     Dates: start: 20120314
  21. CLOZAPINE. [Suspect]
     Active Substance: CLOZAPINE
     Dosage: 350 MG
     Dates: start: 20150930
  22. CLOZAPINE. [Suspect]
     Active Substance: CLOZAPINE
     Dosage: 200 MG
     Dates: start: 20120321
  23. CLOZAPINE. [Suspect]
     Active Substance: CLOZAPINE
     Dosage: 175 MG
     Dates: start: 20130424
  24. CLOZAPINE. [Suspect]
     Active Substance: CLOZAPINE
     Dosage: 350 MG
     Dates: start: 201607

REACTIONS (2)
  - Intestinal obstruction [Unknown]
  - Benign ethnic neutropenia [Not Recovered/Not Resolved]

NARRATIVE: CASE EVENT DATE: 20120206
